FAERS Safety Report 6909712-9 (Version None)
Quarter: 2010Q3

REPORT INFORMATION
  Report Type: 
  Country: None (occurrence: None)
  Receive Date: 20100805
  Receipt Date: 20100723
  Transmission Date: 20110219
  Serious: Yes (Hospitalization)
  Sender: FDA-Public Use
  Company Number: US-ELI_LILLY_AND_COMPANY-US201007006134

PATIENT
  Sex: Female

DRUGS (16)
  1. GEMCITABINE HCL [Suspect]
     Indication: PANCREATIC CARCINOMA
     Dosage: 1000 MG, OTHER
     Route: 042
     Dates: start: 20100701, end: 20100708
  2. OTHER PHARMA COMPANY INV DRUG [Suspect]
     Indication: PANCREATIC CARCINOMA
     Dosage: 100 MG, DAILY (1/D)
     Route: 048
     Dates: start: 20100701, end: 20100714
  3. PACLITAXEL [Suspect]
     Indication: PANCREATIC CARCINOMA
     Dosage: 100 MG, OTHER
     Route: 042
     Dates: start: 20100701, end: 20100708
  4. METOPROLOL [Concomitant]
     Route: 067
  5. LOVASTATIN [Concomitant]
  6. DICLOFENAC [Concomitant]
  7. IBUPROFEN [Concomitant]
  8. MIRALAX [Concomitant]
  9. AMLODIPINE [Concomitant]
  10. AMBIEN [Concomitant]
  11. OXYCODONE [Concomitant]
  12. COMPAZINE [Concomitant]
  13. ONDANSETRON [Concomitant]
  14. ROBITUSSIN [Concomitant]
  15. ATIVAN [Concomitant]
  16. METOCLOPRAMIDE [Concomitant]

REACTIONS (4)
  - FEELING COLD [None]
  - MENINGIOMA [None]
  - OPTIC NEUROPATHY [None]
  - TOXIC NEUROPATHY [None]
